FAERS Safety Report 4443616-9 (Version None)
Quarter: 2004Q3

REPORT INFORMATION
  Report Type: 
  Country: None (occurrence: None)
  Receive Date: 20040908
  Receipt Date: 20040901
  Transmission Date: 20050211
  Serious: Yes (Hospitalization)
  Sender: FDA-Public Use
  Company Number: JP-BRISTOL-MYERS SQUIBB COMPANY-12689980

PATIENT
  Age: 57 Year
  Sex: Female

DRUGS (2)
  1. TAXOL [Suspect]
     Indication: NON-SMALL CELL LUNG CANCER
     Dosage: START DATE: UNKNOWN
     Route: 042
     Dates: start: 20040817, end: 20040817
  2. PARAPLATIN [Suspect]
     Indication: NON-SMALL CELL LUNG CANCER
     Dosage: AUC 6;  START DATE: UNKNOWN
     Route: 042
     Dates: start: 20040817, end: 20040817

REACTIONS (1)
  - PULMONARY ALVEOLAR HAEMORRHAGE [None]
